FAERS Safety Report 9473763 (Version 1)
Quarter: 2013Q3

REPORT INFORMATION
  Report Type: Spontaneous
  Country: US (occurrence: US)
  Receive Date: 20130823
  Receipt Date: 20130823
  Transmission Date: 20140515
  Serious: No
  Sender: FDA-Public Use
  Company Number: US-BRISTOL-MYERS SQUIBB COMPANY-16967630

PATIENT
  Age: 64 Year
  Sex: Male
  Weight: 104.31 kg

DRUGS (12)
  1. SPRYCEL [Suspect]
     Indication: PROSTATE CANCER RECURRENT
     Route: 048
     Dates: start: 2012
  2. BENICAR [Concomitant]
  3. FLECAINE [Concomitant]
  4. MAG-OX [Concomitant]
  5. VIVELLE [Concomitant]
  6. LEXAPRO [Concomitant]
  7. AMBIEN [Concomitant]
  8. FISH OIL [Concomitant]
  9. RISPERDAL [Concomitant]
  10. LECITHIN [Concomitant]
  11. ASPIRIN [Concomitant]
  12. VITAMIN D3 [Concomitant]

REACTIONS (4)
  - Lung disorder [Unknown]
  - Fluid retention [Unknown]
  - Abdominal distension [Not Recovered/Not Resolved]
  - Fatigue [Unknown]
